FAERS Safety Report 4874784-2 (Version None)
Quarter: 2006Q1

REPORT INFORMATION
  Report Type: 
  Country: None (occurrence: None)
  Receive Date: 20060104
  Receipt Date: 20060104
  Transmission Date: 20060701
  Serious: Yes (Other)
  Sender: FDA-Public Use
  Company Number: None

PATIENT
  Age: 41 Year
  Sex: Female
  Weight: 74.8435 kg

DRUGS (3)
  1. GAMUNEX [Suspect]
     Indication: MULTIPLE SCLEROSIS
     Dosage: 10% IV
     Route: 042
     Dates: start: 20051219
  2. GAMUNEX [Suspect]
     Indication: MULTIPLE SCLEROSIS
     Dosage: 10% IV
     Route: 042
     Dates: start: 20051219
  3. GAMUNEX [Suspect]
     Indication: MULTIPLE SCLEROSIS
     Dosage: 10% IV
     Route: 042
     Dates: start: 20051220

REACTIONS (3)
  - DYSPNOEA [None]
  - INFUSION RELATED REACTION [None]
  - TREMOR [None]
